FAERS Safety Report 9490884 (Version 1)
Quarter: 2013Q3

REPORT INFORMATION
  Report Type: Spontaneous
  Country: US (occurrence: US)
  Receive Date: 20130830
  Receipt Date: 20130830
  Transmission Date: 20140515
  Serious: No
  Sender: FDA-Public Use
  Company Number: US-PFIZER INC-2013244197

PATIENT
  Sex: 0

DRUGS (1)
  1. BICILLIN L-A [Suspect]
     Indication: LYME DISEASE
     Dosage: 2 DF, 2X/WEEK

REACTIONS (2)
  - Injection site pain [Unknown]
  - Incorrect dose administered [Unknown]
